FAERS Safety Report 8271650-X (Version None)
Quarter: 2012Q2

REPORT INFORMATION
  Report Type: 
  Country: None (occurrence: None)
  Receive Date: 20120410
  Receipt Date: 20120402
  Transmission Date: 20120825
  Serious: Yes (Other)
  Sender: FDA-Public Use
  Company Number: JP-VERTEX PHARMACEUTICALS INC.-AE-2011-005671

PATIENT
  Age: 58 Year
  Sex: Male

DRUGS (6)
  1. RIBAVIRIN [Concomitant]
     Route: 048
     Dates: start: 20120209
  2. PEGINTERFERON ALFA-2B [Concomitant]
     Indication: HEPATITIS C
     Route: 051
     Dates: start: 20111221
  3. DORAL [Concomitant]
     Route: 048
     Dates: start: 20120223
  4. RIBAVIRIN [Concomitant]
     Indication: HEPATITIS C
     Route: 048
     Dates: start: 20111221, end: 20120126
  5. TELAVIC (TELAPREVIR) [Suspect]
     Indication: HEPATITIS C
     Route: 048
     Dates: start: 20111221, end: 20120314
  6. RIBAVIRIN [Concomitant]
     Route: 048
     Dates: start: 20120126

REACTIONS (5)
  - HYPERURICAEMIA [None]
  - PYREXIA [None]
  - ERYTHEMA [None]
  - ANAEMIA [None]
  - DRUG ERUPTION [None]
